FAERS Safety Report 4263748-8 (Version None)
Quarter: 2004Q1

REPORT INFORMATION
  Report Type: 
  Country: None (occurrence: None)
  Receive Date: 20040102
  Receipt Date: 20031215
  Transmission Date: 20041129
  Serious: Yes (Other)
  Sender: FDA-Public Use
  Company Number: US_030594756

PATIENT
  Age: 35 Year
  Sex: Female

DRUGS (3)
  1. HUMALOG [Suspect]
     Indication: GESTATIONAL DIABETES
     Dosage: 9 U/DAY
     Dates: start: 20030427, end: 20030527
  2. HUMULIN R [Suspect]
     Indication: ABORTION THREATENED
     Dosage: 6 U/DAY
     Dates: start: 20030418, end: 20030501
  3. RITODRINE HYDROCHLORIDE [Concomitant]

REACTIONS (7)
  - ASPARTATE AMINOTRANSFERASE INCREASED [None]
  - BLOOD ALKALINE PHOSPHATASE INCREASED [None]
  - BLOOD LACTATE DEHYDROGENASE INCREASED [None]
  - COMPLICATIONS OF MATERNAL EXPOSURE TO THERAPEUTIC DRUGS [None]
  - HEPATIC FUNCTION ABNORMAL [None]
  - MATERNAL DRUGS AFFECTING FOETUS [None]
  - PREMATURE BABY [None]
